FAERS Safety Report 4288885-3 (Version None)
Quarter: 2004Q1

REPORT INFORMATION
  Report Type: 
  Country: None (occurrence: None)
  Receive Date: 20040203
  Receipt Date: 20030916
  Transmission Date: 20041129
  Serious: Yes (Other)
  Sender: FDA-Public Use
  Company Number: 200226823BWH

PATIENT
  Age: 57 Year
  Sex: Male

DRUGS (3)
  1. AVELOX [Suspect]
     Indication: SINUS DISORDER
     Dosage: 400 MG, QD, ORAL
     Route: 048
     Dates: start: 20021028, end: 20021115
  2. FLONASE [Concomitant]
  3. PREDNISONE [Concomitant]

REACTIONS (5)
  - EYE SWELLING [None]
  - HYPERSENSITIVITY [None]
  - PRURITUS [None]
  - RASH [None]
  - URTICARIA [None]
